FAERS Safety Report 6998564-7 (Version None)
Quarter: 2010Q3

REPORT INFORMATION
  Report Type: 
  Country: None (occurrence: None)
  Receive Date: 20100920
  Receipt Date: 20090831
  Transmission Date: 20110219
  Serious: No
  Sender: FDA-Public Use
  Company Number: US-ASTRAZENECA-2009SE10832

PATIENT
  Sex: Male
  Weight: 111.1 kg

DRUGS (3)
  1. SEROQUEL XR [Suspect]
     Route: 048
  2. TRICOR [Concomitant]
  3. COZAAR [Concomitant]

REACTIONS (3)
  - ASTHENIA [None]
  - FATIGUE [None]
  - PAIN [None]
